FAERS Safety Report 5824779-7 (Version None)
Quarter: 2008Q3

REPORT INFORMATION
  Report Type: 
  Country: None (occurrence: None)
  Receive Date: 20080728
  Receipt Date: 20080716
  Transmission Date: 20090109
  Serious: Yes (Other)
  Sender: FDA-Public Use
  Company Number: ID-ASTRAZENECA-2008AP05573

PATIENT
  Age: 12716 Day
  Sex: Male
  Weight: 112 kg

DRUGS (3)
  1. NEXIUM [Suspect]
     Indication: GASTROOESOPHAGEAL REFLUX DISEASE
     Route: 048
     Dates: start: 20080701, end: 20080716
  2. MOTILIUM [Concomitant]
     Indication: STOMACH DISCOMFORT
     Dosage: 3 X 1 OR 2 TABLETS
     Route: 048
     Dates: start: 20080701
  3. MUCOSTA [Concomitant]
     Indication: GASTRIC ULCER
     Dosage: 3 X 1 TABLETS
     Route: 048
     Dates: start: 20080703

REACTIONS (10)
  - ARTHRALGIA [None]
  - DIARRHOEA [None]
  - DRY MOUTH [None]
  - DYSPNOEA [None]
  - HEADACHE [None]
  - HYPERHIDROSIS [None]
  - MYALGIA [None]
  - SKIN LESION [None]
  - STOMATITIS [None]
  - VISION BLURRED [None]
